FAERS Safety Report 7146211-6 (Version None)
Quarter: 2010Q4

REPORT INFORMATION
  Report Type: 
  Country: None (occurrence: None)
  Receive Date: 20101208
  Receipt Date: 20101206
  Transmission Date: 20110411
  Serious: Yes (Death, Other)
  Sender: FDA-Public Use
  Company Number: PHHO2009DE03153

PATIENT
  Sex: Female
  Weight: 69 kg

DRUGS (2)
  1. PLACEBO [Suspect]
     Indication: PULMONARY HYPERTENSION
     Dosage: NO TREATMENT
     Route: 048
     Dates: start: 20070206
  2. GLEEVEC [Suspect]
     Indication: PULMONARY HYPERTENSION
     Dosage: UNK

REACTIONS (2)
  - DEATH [None]
  - PRESYNCOPE [None]
